FAERS Safety Report 23025826 (Version 2)
Quarter: 2023Q4

REPORT INFORMATION
  Report Type: Report from Study
  Country: AU (occurrence: AU)
  Receive Date: 20231004
  Receipt Date: 20231006
  Transmission Date: 20240109
  Serious: Yes (Other)
  Sender: FDA-Public Use
  Company Number: AU-CELLTRION INC.-2023AU018783

PATIENT

DRUGS (5)
  1. INFLECTRA [Suspect]
     Active Substance: INFLIXIMAB-DYYB
     Indication: Crohn^s disease
     Dosage: 500 MG
     Route: 042
  2. INFLECTRA [Suspect]
     Active Substance: INFLIXIMAB-DYYB
     Dosage: Q8WEEKLY
  3. INFLECTRA [Suspect]
     Active Substance: INFLIXIMAB-DYYB
     Dosage: Q6 WEEKLY DOSING
     Dates: start: 202309
  4. OPTISULIN [CHROMIUM PICOLINATE;FOLIC ACID;PYRIDOXINE HYDROCHLORIDE;VIT [Concomitant]
     Indication: Diabetes mellitus
     Dosage: 20.5 UNITS DAILY
     Route: 058
  5. PREGABALIN [Concomitant]
     Active Substance: PREGABALIN
     Indication: Pain
     Dosage: 300 MG, DAILY
     Route: 048

REACTIONS (1)
  - Faecal calprotectin increased [Unknown]

NARRATIVE: CASE EVENT DATE: 20230804
